FAERS Safety Report 7214356-8 (Version None)
Quarter: 2011Q1

REPORT INFORMATION
  Report Type: 
  Country: None (occurrence: None)
  Receive Date: 20110107
  Receipt Date: 20110103
  Transmission Date: 20110831
  Serious: Yes (Other)
  Sender: FDA-Public Use
  Company Number: SE-BRISTOL-MYERS SQUIBB COMPANY-15468382

PATIENT
  Age: 76 Year
  Sex: Male

DRUGS (2)
  1. IMUREL [Concomitant]
  2. ORENCIA [Suspect]
     Indication: RHEUMATOID ARTHRITIS
     Dosage: STARTED ON ORENCIA ONE YEAR AGO

REACTIONS (1)
  - CARDIAC FAILURE [None]
